FAERS Safety Report 23732876 (Version 1)
Quarter: 2024Q2

REPORT INFORMATION
  Report Type: Spontaneous
  Country: US (occurrence: US)
  Receive Date: 20240411
  Receipt Date: 20240411
  Transmission Date: 20240715
  Serious: No
  Sender: FDA-Public Use
  Company Number: US-PFIZER INC-PV202400046895

PATIENT
  Age: 78 Year
  Sex: Male

DRUGS (3)
  1. INLYTA [Suspect]
     Active Substance: AXITINIB
     Indication: Renal cell carcinoma stage IV
     Dosage: 5 MG ORALLY EVERY 12 HOURS
     Route: 048
  2. INLYTA [Suspect]
     Active Substance: AXITINIB
     Dosage: Q (EVERY) 21D (DAY)
     Dates: start: 20240315
  3. PEMBROLIZUMAB [Suspect]
     Active Substance: PEMBROLIZUMAB
     Indication: Renal cell carcinoma stage IV
     Dosage: Q (EVERY) 21D (DAY)
     Dates: start: 20240315

REACTIONS (1)
  - Body mass index abnormal [Unknown]
